FAERS Safety Report 7096884-1 (Version None)
Quarter: 2010Q4

REPORT INFORMATION
  Report Type: 
  Country: None (occurrence: None)
  Receive Date: 20101111
  Receipt Date: 20100922
  Transmission Date: 20110411
  Serious: No
  Sender: FDA-Public Use
  Company Number: US-BAYER-201039379NA

PATIENT
  Age: 26 Year
  Sex: Female

DRUGS (1)
  1. NATAZIA [Suspect]
     Indication: PRODUCT USED FOR UNKNOWN INDICATION
     Route: 048
     Dates: start: 20100822

REACTIONS (3)
  - PRURITUS [None]
  - PSORIASIS [None]
  - RASH [None]
